FAERS Safety Report 5976047-0 (Version None)
Quarter: 2008Q4

REPORT INFORMATION
  Report Type: 
  Country: None (occurrence: None)
  Receive Date: 20081124
  Receipt Date: 20080603
  Transmission Date: 20090506
  Serious: Yes (Hospitalization, Other)
  Sender: FDA-Public Use
  Company Number: 49066

PATIENT
  Age: 71 Year
  Sex: Male
  Weight: 56.6996 kg

DRUGS (1)
  1. AMIODARONE HCL [Suspect]

REACTIONS (1)
  - ARRHYTHMIA [None]
